FAERS Safety Report 14249748 (Version 1)
Quarter: 2017Q4

REPORT INFORMATION
  Report Type: Spontaneous
  Country: US (occurrence: US)
  Receive Date: 20171204
  Receipt Date: 20171204
  Transmission Date: 20180321
  Serious: Yes (Life-Threatening, Hospitalization, Other)
  Sender: FDA-Public Use
  Company Number: None

PATIENT
  Age: 74 Year
  Sex: Female
  Weight: 84.6 kg

DRUGS (20)
  1. IRBESARTAN. [Concomitant]
     Active Substance: IRBESARTAN
  2. ASPIRIN. [Concomitant]
     Active Substance: ASPIRIN
  3. CRANBERRY. [Concomitant]
     Active Substance: CRANBERRY
  4. INSULIN [Concomitant]
     Active Substance: INSULIN NOS
  5. ATORVASTATIN [Concomitant]
     Active Substance: ATORVASTATIN
  6. HYDROCHLOROTHYAZIDE [Concomitant]
     Active Substance: HYDROCHLOROTHIAZIDE
  7. VITAMIN C [Concomitant]
     Active Substance: ASCORBIC ACID
  8. VITAMIN D [Concomitant]
     Active Substance: CHOLECALCIFEROL
  9. CLOPIDOGREL [Suspect]
     Active Substance: CLOPIDOGREL BISULFATE
     Indication: STENT PLACEMENT
     Dosage: ?          QUANTITY:30 TABLET(S);?
     Route: 048
     Dates: start: 20170901, end: 20171202
  10. CLOPIDOGREL [Suspect]
     Active Substance: CLOPIDOGREL BISULFATE
     Indication: THROMBOSIS PROPHYLAXIS
     Dosage: ?          QUANTITY:30 TABLET(S);?
     Route: 048
     Dates: start: 20170901, end: 20171202
  11. AMLODIPINE BESYLATE. [Concomitant]
     Active Substance: AMLODIPINE BESYLATE
  12. PENTOXIFYLLINE. [Concomitant]
     Active Substance: PENTOXIFYLLINE
  13. NEXIUM [Concomitant]
     Active Substance: ESOMEPRAZOLE MAGNESIUM
  14. CARVEDILOL. [Concomitant]
     Active Substance: CARVEDILOL
  15. FUROSEMIDE. [Concomitant]
     Active Substance: FUROSEMIDE
  16. VITAMIN B12 [Concomitant]
     Active Substance: CYANOCOBALAMIN
  17. MAGNESIUM [Concomitant]
     Active Substance: MAGNESIUM
  18. CALCIUM [Concomitant]
     Active Substance: CALCIUM
  19. LEVOTHYROXINE. [Suspect]
     Active Substance: LEVOTHYROXINE
  20. B6 [Concomitant]
     Active Substance: PYRIDOXINE HYDROCHLORIDE

REACTIONS (2)
  - Cardiac failure congestive [None]
  - Hypoxia [None]

NARRATIVE: CASE EVENT DATE: 20171127
